FAERS Safety Report 6168700-3 (Version None)
Quarter: 2009Q2

REPORT INFORMATION
  Report Type: 
  Country: None (occurrence: None)
  Receive Date: 20090427
  Receipt Date: 20090415
  Transmission Date: 20091009
  Serious: Yes (Life-Threatening, Hospitalization)
  Sender: FDA-Public Use
  Company Number: JP-PFIZER INC-2009156269

PATIENT

DRUGS (8)
  1. ZYVOX [Suspect]
     Indication: MUSCLE ABSCESS
     Dosage: 600 MG, 2X/DAY
     Route: 048
     Dates: start: 20081224, end: 20090105
  2. VASOLAN [Concomitant]
     Route: 048
  3. RISUMIC [Concomitant]
     Route: 048
  4. LOXONIN [Concomitant]
     Route: 048
  5. MAGNESIUM OXIDE [Concomitant]
     Route: 048
  6. PURSENNID [Concomitant]
     Route: 048
  7. SELBEX [Concomitant]
     Route: 048
  8. TAKEPRON [Concomitant]
     Route: 048

REACTIONS (4)
  - HYPERKALAEMIA [None]
  - LIVER DISORDER [None]
  - SOMNOLENCE [None]
  - THROMBOCYTOPENIA [None]
